FAERS Safety Report 5962312-X (Version None)
Quarter: 2008Q4

REPORT INFORMATION
  Report Type: 
  Country: None (occurrence: None)
  Receive Date: 20081119
  Receipt Date: 20080918
  Transmission Date: 20090506
  Serious: No
  Sender: FDA-Public Use
  Company Number: WAES 0809USA03178

PATIENT
  Age: 65 Year
  Sex: Male

DRUGS (6)
  1. JANUVIA [Suspect]
     Indication: DIABETES MELLITUS
     Dosage: 100 MG/DAILY/PO ; PO
     Route: 048
     Dates: start: 20070901, end: 20080401
  2. JANUVIA [Suspect]
     Indication: DIABETES MELLITUS
     Dosage: 100 MG/DAILY/PO ; PO
     Route: 048
     Dates: start: 20080426
  3. COREG [Concomitant]
  4. LIPITOR [Concomitant]
  5. AMLODIPINE BESYLATE [Concomitant]
  6. GLYBURIDE [Concomitant]

REACTIONS (2)
  - DERMATITIS [None]
  - URTICARIA [None]
